FAERS Safety Report 22019366 (Version 1)
Quarter: 2023Q1

REPORT INFORMATION
  Report Type: Spontaneous
  Country: US (occurrence: US)
  Receive Date: 20230222
  Receipt Date: 20230222
  Transmission Date: 20230418
  Serious: No
  Sender: FDA-Public Use
  Company Number: US-ELI_LILLY_AND_COMPANY-US202302007933

PATIENT
  Age: 67 Year
  Sex: Female

DRUGS (2)
  1. TRULICITY [Suspect]
     Active Substance: DULAGLUTIDE
     Indication: Type 2 diabetes mellitus
     Dosage: 0.75 MG, UNKNOWN
     Route: 058
     Dates: start: 20230128, end: 20230211
  2. INVOKANA [Concomitant]
     Active Substance: CANAGLIFLOZIN
     Indication: Type 2 diabetes mellitus

REACTIONS (5)
  - Nausea [Recovering/Resolving]
  - Eructation [Recovering/Resolving]
  - Diarrhoea [Recovering/Resolving]
  - Fatigue [Unknown]
  - Vomiting [Recovering/Resolving]

NARRATIVE: CASE EVENT DATE: 20230128
